FAERS Safety Report 19111639 (Version 1)
Quarter: 2021Q2

REPORT INFORMATION
  Report Type: Spontaneous
  Country: CN (occurrence: CN)
  Receive Date: 20210408
  Receipt Date: 20210408
  Transmission Date: 20210717
  Serious: Yes (Other)
  Sender: FDA-Public Use
  Company Number: CN-PFIZER INC-2021355377

PATIENT
  Age: 33 Year
  Sex: Female
  Weight: 55 kg

DRUGS (1)
  1. METHOTREXATE. [Suspect]
     Active Substance: METHOTREXATE
     Indication: ECTOPIC PREGNANCY
     Dosage: 80 MG, 1X/DAY
     Route: 030
     Dates: start: 20210310, end: 20210318

REACTIONS (4)
  - Therapeutic product effect incomplete [Unknown]
  - Injection site erythema [Recovered/Resolved]
  - Injection site induration [Unknown]
  - Injection site swelling [Recovered/Resolved]

NARRATIVE: CASE EVENT DATE: 202103
